FAERS Safety Report 14666150 (Version 2)
Quarter: 2018Q1

REPORT INFORMATION
  Report Type: Spontaneous
  Country: US (occurrence: US)
  Receive Date: 20180321
  Receipt Date: 20180326
  Transmission Date: 20180509
  Serious: Yes (Other)
  Sender: FDA-Public Use
  Company Number: US-ROCHE-2092242

PATIENT
  Age: 66 Year
  Sex: Female

DRUGS (1)
  1. ACTILYSE [Suspect]
     Active Substance: ALTEPLASE
     Indication: CHOROIDAL INFARCTION
     Route: 065

REACTIONS (2)
  - Retroperitoneal haematoma [Recovered/Resolved]
  - Arthralgia [Unknown]
